FAERS Safety Report 25644877 (Version 2)
Quarter: 2025Q3

REPORT INFORMATION
  Report Type: Spontaneous
  Country: US (occurrence: US)
  Receive Date: 20250805
  Receipt Date: 20250824
  Transmission Date: 20251020
  Serious: No
  Sender: SANOFI AVENTIS
  Company Number: US-SA-2025SA227902

PATIENT
  Sex: Male
  Weight: 65.91 kg

DRUGS (2)
  1. DUPIXENT [Suspect]
     Active Substance: DUPILUMAB
     Indication: Illness
     Dosage: 300 MG, QOW
     Route: 058
  2. MUPIROCIN [Concomitant]
     Active Substance: MUPIROCIN

REACTIONS (6)
  - Skin disorder [Unknown]
  - Condition aggravated [Unknown]
  - Wound [Unknown]
  - Muscle spasms [Unknown]
  - Pain [Unknown]
  - Drug ineffective for unapproved indication [Unknown]
